FAERS Safety Report 8905723 (Version 2)
Quarter: 2012Q4

REPORT INFORMATION
  Report Type: 
  Country: IL (occurrence: IL)
  Receive Date: 20121111
  Receipt Date: 20121210
  Transmission Date: 20130627
  Serious: Yes (Hospitalization)
  Sender: FDA-Public Use
  Company Number: PHHY2012IL097778

PATIENT
  Age: 81 Year
  Sex: Female

DRUGS (3)
  1. SANDOSTATIN LAR [Suspect]
     Indication: CARCINOID TUMOUR
     Dosage: 30 mg once every 28 days
     Dates: start: 20120729
  2. SANDOSTATIN LAR [Suspect]
     Dosage: 30 mg once every 28 days
     Dates: start: 20120927
  3. SANDOSTATIN LAR [Suspect]
     Dosage: 30 mg once every 28 days
     Dates: start: 20121025

REACTIONS (2)
  - Cardiac valve disease [Unknown]
  - Oedema peripheral [Not Recovered/Not Resolved]
